FAERS Safety Report 9447511 (Version 2)
Quarter: 2013Q3

REPORT INFORMATION
  Report Type: Spontaneous
  Country: US (occurrence: US)
  Receive Date: 20130808
  Receipt Date: 20130812
  Transmission Date: 20140515
  Serious: No
  Sender: FDA-Public Use
  Company Number: US-PFIZER INC-2013229716

PATIENT
  Age: 49 Year
  Sex: Male

DRUGS (5)
  1. IBUPROFEN [Suspect]
  2. MORPHINE SULFATE [Suspect]
  3. CYMBALTA [Suspect]
  4. CRESTOR [Suspect]
  5. VALIUM [Suspect]

REACTIONS (1)
  - Drug hypersensitivity [Unknown]
